FAERS Safety Report 25357850 (Version 1)
Quarter: 2025Q2

REPORT INFORMATION
  Report Type: Spontaneous
  Country: US (occurrence: US)
  Receive Date: 20250526
  Receipt Date: 20250526
  Transmission Date: 20250716
  Serious: No
  Sender: SANOFI AVENTIS
  Company Number: US-SA-2025SA147705

PATIENT
  Age: 31 Year
  Sex: Male

DRUGS (2)
  1. ELOCTATE [Suspect]
     Active Substance: EFMOROCTOCOG ALFA
     Indication: Factor VIII deficiency
     Dosage: 2300 UNITS (2070-2530) SLOW IV PUSH TWO TIMES A WEEK AND AS NEEDED EVERY 24 HOURS FOR 2 DOSES FOR BL
     Route: 042
     Dates: start: 202304
  2. ELOCTATE [Suspect]
     Active Substance: EFMOROCTOCOG ALFA
     Indication: Factor VIII deficiency
     Dosage: 2300 UNITS (2070-2530) SLOW IV PUSH TWO TIMES A WEEK AND AS NEEDED EVERY 24 HOURS FOR 2 DOSES FOR BL
     Route: 042
     Dates: start: 202304

REACTIONS (1)
  - Arthralgia [Unknown]

NARRATIVE: CASE EVENT DATE: 20250520
